FAERS Safety Report 5005117-9 (Version None)
Quarter: 2006Q2

REPORT INFORMATION
  Report Type: 
  Country: None (occurrence: None)
  Receive Date: 20060512
  Receipt Date: 20060501
  Transmission Date: 20061013
  Serious: Yes (Hospitalization)
  Sender: FDA-Public Use
  Company Number: 2006026024

PATIENT
  Age: 65 Year
  Sex: Male
  Weight: 80 kg

DRUGS (4)
  1. SUTENT [Suspect]
     Indication: RENAL CELL CARCINOMA STAGE UNSPECIFIED
     Dosage: 50 MG (50 MG, 1 IN 1 D) ORAL
     Route: 048
     Dates: start: 20060202
  2. ACETAMINOPHEN [Concomitant]
  3. CLODRONATE DISODIUM [Concomitant]
  4. GAVISCON [Concomitant]

REACTIONS (7)
  - AKINESIA [None]
  - ATRIAL FIBRILLATION [None]
  - ATRIAL FLUTTER [None]
  - CARDIOMYOPATHY [None]
  - INTRACARDIAC THROMBUS [None]
  - VENTRICULAR DYSFUNCTION [None]
  - VIRAL INFECTION [None]
